FAERS Safety Report 16428213 (Version 2)
Quarter: 2019Q3

REPORT INFORMATION
  Report Type: Report from Study
  Country: US (occurrence: US)
  Receive Date: 20190613
  Receipt Date: 20190730
  Transmission Date: 20191004
  Serious: Yes (Hospitalization)
  Sender: FDA-Public Use
  Company Number: US-EXELIXIS-XL18419021757

PATIENT
  Age: 50 Year
  Sex: Male
  Weight: 74.2 kg

DRUGS (15)
  1. DEXAMETHASONE. [Concomitant]
     Active Substance: DEXAMETHASONE
  2. LORAZEPAM. [Concomitant]
     Active Substance: LORAZEPAM
  3. SENNOSIDE [Concomitant]
     Active Substance: SENNOSIDES
  4. ATEZOLIZUMAB. [Suspect]
     Active Substance: ATEZOLIZUMAB
     Indication: OESOPHAGEAL ADENOCARCINOMA
     Dosage: 1200 MG, Q3WEEKS
     Route: 042
     Dates: start: 20190530
  5. HYDROMORPHONE [Concomitant]
     Active Substance: HYDROMORPHONE
  6. MORPHINE SULPHATE [Concomitant]
     Active Substance: MORPHINE SULFATE
  7. XL184 [Suspect]
     Active Substance: CABOZANTINIB
     Indication: OESOPHAGEAL ADENOCARCINOMA
     Dosage: 40 MG, QD
     Route: 048
     Dates: start: 20190530, end: 20190606
  8. LACTOBAC [Concomitant]
     Active Substance: LACTOBACILLUS ACIDOPHILUS
  9. MS CONTIN [Concomitant]
     Active Substance: MORPHINE SULFATE
  10. OMEPRAZOLE. [Concomitant]
     Active Substance: OMEPRAZOLE
  11. ONDANSETRON [Concomitant]
     Active Substance: ONDANSETRON
  12. PROCHLORPERAZINE MALEATE. [Concomitant]
     Active Substance: PROCHLORPERAZINE MALEATE
  13. XL184 [Suspect]
     Active Substance: CABOZANTINIB
     Dosage: 40 MG, QD
     Route: 048
     Dates: start: 20190608
  14. MULTIVITAMIN [Concomitant]
     Active Substance: VITAMINS
  15. DOCUSATE SODIUM. [Concomitant]
     Active Substance: DOCUSATE SODIUM

REACTIONS (1)
  - Mental status changes [Recovered/Resolved]

NARRATIVE: CASE EVENT DATE: 20190606
